FAERS Safety Report 9565996 (Version 1)
Quarter: 2013Q3

REPORT INFORMATION
  Report Type: Spontaneous
  Country: FR (occurrence: FR)
  Receive Date: 20130930
  Receipt Date: 20130930
  Transmission Date: 20140515
  Serious: Yes (Death, Hospitalization)
  Sender: FDA-Public Use
  Company Number: FR-ASTRAZENECA-2013SE72259

PATIENT
  Age: 868 Month
  Sex: Male
  Weight: 53 kg

DRUGS (13)
  1. INEXIUM [Suspect]
     Route: 048
  2. PAMIDRONATE SODIUM [Suspect]
     Route: 065
     Dates: start: 2007
  3. PAMIDRONATE SODIUM [Suspect]
     Route: 065
     Dates: start: 20121213
  4. PAMIDRONATE SODIUM [Suspect]
     Route: 065
     Dates: start: 20130111
  5. PAMIDRONATE SODIUM [Suspect]
     Route: 065
     Dates: start: 20130425
  6. REVLIMID [Suspect]
     Route: 065
  7. MEDROL [Suspect]
     Route: 065
  8. TRIATEC [Concomitant]
     Route: 048
  9. DOLIPRANE [Concomitant]
     Route: 048
  10. TARDYFERON [Concomitant]
  11. KEPRA [Concomitant]
     Route: 048
  12. ARANESP [Concomitant]
  13. CALCIDIA [Concomitant]

REACTIONS (5)
  - Hypocalcaemia [Recovered/Resolved]
  - Hyperphosphataemia [Unknown]
  - General physical health deterioration [Unknown]
  - Sepsis [Fatal]
  - Joint abscess [Fatal]
